FAERS Safety Report 8767401 (Version 1)
Quarter: 2012Q4

REPORT INFORMATION
  Report Type: 
  Country: BR (occurrence: BR)
  Receive Date: 20120904
  Receipt Date: 20120904
  Transmission Date: 20130627
  Serious: Yes (Other)
  Sender: FDA-Public Use
  Company Number: BR-SANOFI-AVENTIS-2012SA062308

PATIENT
  Age: 74 Year
  Sex: Male

DRUGS (5)
  1. LANTUS SOLOSTAR [Suspect]
     Indication: TYPE 2 DIABETES MELLITUS
     Route: 065
     Dates: start: 201201, end: 20120814
  2. LANTUS SOLOSTAR [Suspect]
     Indication: TYPE 2 DIABETES MELLITUS
     Route: 065
     Dates: start: 201208
  3. SOLOSTAR [Suspect]
     Indication: DEVICE THERAPY
     Dates: start: 201201, end: 20120814
  4. SOLOSTAR [Suspect]
     Indication: DEVICE THERAPY
     Dates: start: 201208
  5. JANUMET [Concomitant]

REACTIONS (3)
  - Glaucoma [Recovered/Resolved]
  - Blood glucose increased [Unknown]
  - Drug abuse [Unknown]
